FAERS Safety Report 4309533-X (Version None)
Quarter: 2004Q1

REPORT INFORMATION
  Report Type: 
  Country: None (occurrence: None)
  Receive Date: 20040301
  Receipt Date: 20040216
  Transmission Date: 20041129
  Serious: Yes (Other)
  Sender: FDA-Public Use
  Company Number: GB-JNJFOC-20040203333

PATIENT
  Age: 50 Year
  Sex: Female

DRUGS (3)
  1. RISPERDAL [Suspect]
     Indication: PSYCHOTIC DISORDER
     Dosage: 2 MG, 2 IN 1 DAY, ORAL
     Route: 048
  2. GENERAL ANAESTHETIC (ANAESTHETICS, GENERAL) [Suspect]
  3. CITALOPRAM (CITALOPRAM) [Concomitant]

REACTIONS (5)
  - DELAYED RECOVERY FROM ANAESTHESIA [None]
  - DRUG INTERACTION [None]
  - POST PROCEDURAL COMPLICATION [None]
  - PSYCHOTIC DISORDER [None]
  - SOMNOLENCE [None]
